FAERS Safety Report 12635013 (Version 1)
Quarter: 2016Q3

REPORT INFORMATION
  Report Type: Spontaneous
  Country: US (occurrence: US)
  Receive Date: 20160809
  Receipt Date: 20160809
  Transmission Date: 20161109
  Serious: Yes (Hospitalization, Other)
  Sender: FDA-Public Use
  Company Number: US-ASTRAZENECA-2016SE83908

PATIENT
  Age: 48 Year
  Sex: Female
  Weight: 94.3 kg

DRUGS (14)
  1. LOSARTAN. [Concomitant]
     Active Substance: LOSARTAN
     Indication: HYPERTENSION
  2. PLAVIX [Concomitant]
     Active Substance: CLOPIDOGREL BISULFATE
  3. IMDUR [Suspect]
     Active Substance: ISOSORBIDE MONONITRATE
     Dosage: 60.0MG UNKNOWN
     Route: 048
  4. METOPROLOL ER [Suspect]
     Active Substance: METOPROLOL SUCCINATE
     Dosage: 200.0MG UNKNOWN
     Route: 048
  5. KOMBIGLYZE XR [Concomitant]
     Active Substance: METFORMIN HYDROCHLORIDE\SAXAGLIPTIN HYDROCHLORIDE
  6. CRESTOR [Suspect]
     Active Substance: ROSUVASTATIN CALCIUM
     Route: 048
  7. SPIRONOLACTONE. [Concomitant]
     Active Substance: SPIRONOLACTONE
     Indication: BLOOD PRESSURE ABNORMAL
     Dates: start: 2015
  8. FELODIPINE. [Suspect]
     Active Substance: FELODIPINE
     Route: 048
  9. ANASTRAZOLE [Suspect]
     Active Substance: ANASTROZOLE
     Dosage: 1.0MG UNKNOWN
     Route: 048
  10. PANTOPRAZOLE [Concomitant]
     Active Substance: PANTOPRAZOLE SODIUM
     Indication: GASTROOESOPHAGEAL REFLUX DISEASE
     Dates: start: 2015
  11. GLIPIZIDE. [Concomitant]
     Active Substance: GLIPIZIDE
     Indication: BLOOD CHOLESTEROL ABNORMAL
  12. TRIGLYCERIDES [Concomitant]
  13. CHLOROTHALIDONE [Concomitant]
     Indication: BLOOD PRESSURE ABNORMAL
     Dates: start: 2015
  14. JANUMET [Concomitant]
     Active Substance: METFORMIN HYDROCHLORIDE\SITAGLIPTIN PHOSPHATE

REACTIONS (11)
  - Skin cancer [Unknown]
  - Cardiac disorder [Unknown]
  - Hypertension [Unknown]
  - Gastrooesophageal reflux disease [Unknown]
  - Renal failure [Unknown]
  - Aortic aneurysm [Unknown]
  - Burning sensation [Unknown]
  - Diabetes mellitus [Unknown]
  - Breast cancer [Unknown]
  - Intentional product misuse [Unknown]
  - Vein disorder [None]

NARRATIVE: CASE EVENT DATE: 1992
